FAERS Safety Report 11802997 (Version 2)
Quarter: 2015Q4

REPORT INFORMATION
  Report Type: Report from Study
  Country: US (occurrence: US)
  Receive Date: 20151204
  Receipt Date: 20151204
  Transmission Date: 20160305
  Serious: Yes (Hospitalization)
  Sender: FDA-Public Use
  Company Number: US-BIOGENIDEC-2015BI159476

PATIENT
  Age: 39 Year
  Sex: Female

DRUGS (20)
  1. AMBIEN [Concomitant]
     Active Substance: ZOLPIDEM TARTRATE
  2. VITAMIN D [Concomitant]
     Active Substance: CHOLECALCIFEROL
  3. MOBIC [Concomitant]
     Active Substance: MELOXICAM
  4. MVI [Concomitant]
     Active Substance: VITAMINS
  5. BACLOFEN. [Concomitant]
     Active Substance: BACLOFEN
  6. OMEPRAZOLE. [Concomitant]
     Active Substance: OMEPRAZOLE
  7. PRAVASTATIN [Concomitant]
     Active Substance: PRAVASTATIN\PRAVASTATIN SODIUM
  8. SERQUEL [Concomitant]
  9. WELLBUTRIN [Concomitant]
     Active Substance: BUPROPION HYDROCHLORIDE
  10. VOLTAREN [Concomitant]
     Active Substance: DICLOFENAC SODIUM
  11. CALCIUM [Concomitant]
     Active Substance: CALCIUM
  12. CYMBALTA [Concomitant]
     Active Substance: DULOXETINE HYDROCHLORIDE
  13. TURMERIC [Concomitant]
     Active Substance: TURMERIC
  14. TYSABRI [Suspect]
     Active Substance: NATALIZUMAB
     Indication: MULTIPLE SCLEROSIS
     Route: 042
  15. AMPYRA [Concomitant]
     Active Substance: DALFAMPRIDINE
  16. ASA [Concomitant]
     Active Substance: ASPIRIN
  17. ATIVAN [Concomitant]
     Active Substance: LORAZEPAM
  18. MAXALT [Concomitant]
     Active Substance: RIZATRIPTAN BENZOATE
  19. PERCOCET [Concomitant]
     Active Substance: ACETAMINOPHEN\OXYCODONE HYDROCHLORIDE
  20. PROVIGIL [Concomitant]
     Active Substance: MODAFINIL

REACTIONS (7)
  - Stress [Unknown]
  - Depression [Unknown]
  - Angina pectoris [Unknown]
  - Bipolar disorder [Unknown]
  - Mouth ulceration [Unknown]
  - Cardiac murmur [Unknown]
  - Anxiety [Unknown]

NARRATIVE: CASE EVENT DATE: 201511
